FAERS Safety Report 10836021 (Version 1)
Quarter: 2015Q1

REPORT INFORMATION
  Report Type: Report from Study
  Country: RU (occurrence: RU)
  Receive Date: 20150219
  Receipt Date: 20150219
  Transmission Date: 20150721
  Serious: Yes (Other)
  Sender: FDA-Public Use
  Company Number: RU-BAXTER-2015BAX009110

PATIENT
  Age: 56 Year
  Sex: Female

DRUGS (4)
  1. GRANULOCYTE COLONY STIMULATING FACTOR [Suspect]
     Active Substance: GRANULOCYTE COLONY-STIMULATING FACTOR NOS
     Indication: PLASMA CELL MYELOMA
     Route: 058
  2. HEPARIN SULPHATE [Suspect]
     Active Substance: SODIUM HEPARAN SULFATE (PORCINE; 5500 MW)
     Indication: THROMBOSIS PROPHYLAXIS
     Dosage: INFUSION
     Route: 042
  3. ENDOKSAN POROSHOK DLJA PRIGOTOVLENIJA RASTVORA DLJA VNUTRIVENNOGO VVED [Suspect]
     Active Substance: CYCLOPHOSPHAMIDE
     Indication: PLASMA CELL MYELOMA
     Dosage: 4 GRAM PER METER SQUARE
     Route: 065
  4. BORTEZOMIB [Suspect]
     Active Substance: BORTEZOMIB
     Indication: CHEMOTHERAPY
     Route: 065

REACTIONS (2)
  - Cerebral circulatory failure [Unknown]
  - Carotid artery occlusion [Unknown]
